FAERS Safety Report 17825018 (Version 1)
Quarter: 2020Q2

REPORT INFORMATION
  Report Type: Spontaneous
  Country: US (occurrence: US)
  Receive Date: 20200526
  Receipt Date: 20200526
  Transmission Date: 20200714
  Serious: No
  Sender: FDA-Public Use
  Company Number: US-SA-2020SA132553

PATIENT
  Age: 12 Year
  Sex: Male

DRUGS (1)
  1. DUPIXENT [Suspect]
     Active Substance: DUPILUMAB
     Indication: DERMATITIS ATOPIC
     Dosage: UNK, QOW
     Route: 058
     Dates: start: 201811

REACTIONS (7)
  - Drug ineffective [Unknown]
  - Scratch [Unknown]
  - Rash [Unknown]
  - Skin exfoliation [Unknown]
  - Injection site erythema [Unknown]
  - Rash macular [Unknown]
  - Product use issue [Unknown]

NARRATIVE: CASE EVENT DATE: 201811
